FAERS Safety Report 23149269 (Version 1)
Quarter: 2023Q4

REPORT INFORMATION
  Report Type: Spontaneous
  Country: US (occurrence: US)
  Receive Date: 20231106
  Receipt Date: 20231106
  Transmission Date: 20240110
  Serious: No
  Sender: FDA-Public Use
  Company Number: US-RECKITT BENCKISER HEALTHCARE INT LIMITED-RB-093854-2023

PATIENT

DRUGS (1)
  1. MUCINEX [Suspect]
     Active Substance: GUAIFENESIN
     Indication: Cough
     Dosage: UNKNOWN
     Route: 048

REACTIONS (5)
  - Dizziness [Unknown]
  - Depression [Unknown]
  - Condition aggravated [Unknown]
  - Disorientation [Unknown]
  - Therapeutic product effect incomplete [Not Recovered/Not Resolved]
